FAERS Safety Report 4648101-7 (Version None)
Quarter: 2005Q2

REPORT INFORMATION
  Report Type: 
  Country: None (occurrence: None)
  Receive Date: 20050331
  Receipt Date: 20050221
  Transmission Date: 20051028
  Serious: No
  Sender: FDA-Public Use
  Company Number: 04P-163-0283092-00

PATIENT
  Age: 84 Year
  Sex: Female
  Weight: 74.8435 kg

DRUGS (11)
  1. HUMIRA [Suspect]
     Indication: RHEUMATOID ARTHRITIS
     Dosage: 40 MG, 1 IN 2 WK, SUBCUTANEOUS
     Route: 058
     Dates: start: 20040801, end: 20041213
  2. HUMIRA [Suspect]
     Indication: RHEUMATOID ARTHRITIS
     Dosage: 40 MG, 1 IN 1 WK, SUBCUTANEOUS
     Route: 058
     Dates: start: 20041213
  3. METHOTREXATE SODIUM [Concomitant]
  4. FOLIC ACID [Concomitant]
  5. CELECOXIB [Concomitant]
  6. ALENDRONATE SODIUM [Concomitant]
  7. CALCIUM GLUCONATE [Concomitant]
  8. DEXAMETHASONE [Concomitant]
  9. ASPIRIN [Concomitant]
  10. AZATHIOPRINE [Concomitant]
  11. ATORVASTATIN [Concomitant]

REACTIONS (4)
  - CONDITION AGGRAVATED [None]
  - HAIR GROWTH ABNORMAL [None]
  - HEPATIC ENZYME INCREASED [None]
  - RHEUMATOID ARTHRITIS [None]
